FAERS Safety Report 20821790 (Version 1)
Quarter: 2022Q2

REPORT INFORMATION
  Report Type: Spontaneous
  Country: GB (occurrence: GB)
  Receive Date: 20220512
  Receipt Date: 20220512
  Transmission Date: 20220721
  Serious: Yes (Other)
  Sender: FDA-Public Use
  Company Number: GB-MHRA-MED-202205082343138960-ZV55J

PATIENT

DRUGS (1)
  1. DOXYCYCLINE [Suspect]
     Active Substance: DOXYCYCLINE
     Dosage: 100MG
     Dates: start: 20220425

REACTIONS (1)
  - Photoonycholysis [Not Recovered/Not Resolved]

NARRATIVE: CASE EVENT DATE: 20220501
